FAERS Safety Report 15084708 (Version 2)
Quarter: 2018Q3

REPORT INFORMATION
  Report Type: Spontaneous
  Country: US (occurrence: US)
  Receive Date: 20180628
  Receipt Date: 20180713
  Transmission Date: 20181010
  Serious: Yes (Hospitalization, Other)
  Sender: FDA-Public Use
  Company Number: US-TEVA-2018-US-913851

PATIENT
  Age: 48 Year
  Sex: Male

DRUGS (1)
  1. ALPRAZOLAM. [Suspect]
     Active Substance: ALPRAZOLAM
     Route: 065

REACTIONS (5)
  - Delirium [Recovering/Resolving]
  - Agitation [Recovering/Resolving]
  - Fall [Recovering/Resolving]
  - Withdrawal syndrome [Recovering/Resolving]
  - Drug abuse [Recovering/Resolving]
